FAERS Safety Report 6102087-7 (Version None)
Quarter: 2009Q1

REPORT INFORMATION
  Report Type: 
  Country: None (occurrence: None)
  Receive Date: 20090303
  Receipt Date: 20090303
  Transmission Date: 20090719
  Serious: Yes (Other)
  Sender: FDA-Public Use
  Company Number: None

PATIENT
  Sex: Male
  Weight: 86.2 kg

DRUGS (2)
  1. METOPROLOL TARTRATE [Suspect]
  2. LIBRIUM [Suspect]

REACTIONS (1)
  - RASH ERYTHEMATOUS [None]
